FAERS Safety Report 6537324-8 (Version None)
Quarter: 2010Q1

REPORT INFORMATION
  Report Type: 
  Country: None (occurrence: None)
  Receive Date: 20100114
  Receipt Date: 20100107
  Transmission Date: 20100710
  Serious: Yes (Hospitalization)
  Sender: FDA-Public Use
  Company Number: US-BAXTER-2009BH008599

PATIENT
  Age: 30 Year
  Sex: Female
  Weight: 102 kg

DRUGS (7)
  1. TISSEEL VH KIT [Suspect]
     Indication: SURGERY
     Route: 065
     Dates: start: 20090424, end: 20090424
  2. TISSEEL VH KIT [Suspect]
     Indication: INTRACRANIAL HYPOTENSION
     Route: 065
     Dates: start: 20090424, end: 20090424
  3. PERCOCET [Concomitant]
     Indication: HEADACHE
     Route: 048
     Dates: start: 20090426
  4. SOMA [Concomitant]
     Indication: MUSCLE SPASMS
     Route: 048
     Dates: start: 20090425
  5. SENOKOT /UNK/ [Concomitant]
     Indication: FAECES HARD
     Route: 048
     Dates: start: 20090425
  6. LOESTRIN 1.5/30 [Concomitant]
     Indication: CONTRACEPTION
     Route: 048
     Dates: start: 19990101
  7. IBUPROFEN [Concomitant]
     Indication: HEADACHE
     Route: 048
     Dates: start: 19990101

REACTIONS (1)
  - PSEUDOMENINGOCELE [None]
